FAERS Safety Report 4749897-6 (Version None)
Quarter: 2005Q3

REPORT INFORMATION
  Report Type: 
  Country: None (occurrence: None)
  Receive Date: 20050822
  Receipt Date: 20050715
  Transmission Date: 20060218
  Serious: Yes (Hospitalization)
  Sender: FDA-Public Use
  Company Number: JP-ABBOTT-05P-087-0305910-00

PATIENT
  Sex: Male

DRUGS (6)
  1. CEFZON [Suspect]
     Indication: BACTERIAL INFECTION
     Route: 048
     Dates: start: 20050622, end: 20050629
  2. LEVOFLOXACIN [Suspect]
     Indication: BACTERIAL INFECTION
     Route: 048
     Dates: start: 20050628, end: 20050629
  3. COUPELACIN [Suspect]
     Indication: BACTERIAL INFECTION
     Dosage: REGIMEN #1
     Route: 042
     Dates: start: 20050628, end: 20050628
  4. CEFOZOPRAN HYDROCHLORIDE [Suspect]
     Indication: BACTERIAL INFECTION
     Dosage: REGIMEN #1
     Route: 042
     Dates: start: 20050629, end: 20050629
  5. PIPERACILLIN SODIUM [Concomitant]
     Indication: DRUG USE FOR UNKNOWN INDICATION
     Route: 050
     Dates: start: 20050629, end: 20050704
  6. CARBOCISTEINE [Concomitant]
     Indication: DRUG USE FOR UNKNOWN INDICATION
     Dates: start: 20050628

REACTIONS (3)
  - CONDITION AGGRAVATED [None]
  - LIVER DISORDER [None]
  - PYREXIA [None]
